FAERS Safety Report 8615866-9 (Version None)
Quarter: 2012Q3

REPORT INFORMATION
  Report Type: 
  Country: None (occurrence: None)
  Receive Date: 20120823
  Receipt Date: 20120821
  Transmission Date: 20120928
  Serious: Yes (Hospitalization)
  Sender: FDA-Public Use
  Company Number: US-ROCHE-1104859

PATIENT
  Age: 62 Year
  Sex: Female

DRUGS (11)
  1. METHOTREXATE [Suspect]
     Dates: start: 20080101, end: 20080301
  2. MABTHERA [Suspect]
     Indication: RHEUMATOID ARTHRITIS
     Dates: start: 20090901, end: 20100301
  3. LEFLUNOMIDE [Concomitant]
     Dates: start: 20020701, end: 20060301
  4. ABATACEPT [Suspect]
     Indication: RHEUMATOID ARTHRITIS
     Dates: start: 20090901, end: 20100301
  5. METHOTREXATE [Suspect]
     Indication: RHEUMATOID ARTHRITIS
     Dates: start: 20080401, end: 20091101
  6. ETANERCEPT [Concomitant]
     Dates: start: 20060601, end: 20071201
  7. TOCILIZUMAB [Suspect]
     Indication: RHEUMATOID ARTHRITIS
     Dates: start: 20100401, end: 20101101
  8. ETANERCEPT [Concomitant]
     Dates: start: 20050201, end: 20050501
  9. GOLIMUMAB [Suspect]
     Indication: RHEUMATOID ARTHRITIS
     Dates: start: 20101101, end: 20110201
  10. LEVOTHYROXINE SODIUM [Concomitant]
  11. METFORMIN [Concomitant]

REACTIONS (1)
  - THYROID CANCER RECURRENT [None]
